FAERS Safety Report 24712288 (Version 1)
Quarter: 2024Q4

REPORT INFORMATION
  Report Type: Spontaneous
  Country: CN (occurrence: CN)
  Receive Date: 20241209
  Receipt Date: 20241209
  Transmission Date: 20250114
  Serious: Yes (Other)
  Sender: GE HEALTHCARE
  Company Number: CN-GE HEALTHCARE-2024CSU014039

PATIENT
  Age: 64 Year
  Sex: Male
  Weight: 70 kg

DRUGS (4)
  1. OMNISCAN [Suspect]
     Active Substance: GADODIAMIDE
     Indication: Imaging procedure
     Dosage: 30 ML, TOTAL
     Route: 041
     Dates: start: 20241101, end: 20241101
  2. SHEN QI FU ZHENG [Concomitant]
     Indication: Lung neoplasm malignant
     Dosage: 250 ML, QD
     Route: 041
     Dates: start: 20241028, end: 20241031
  3. SHEN QI FU ZHENG [Concomitant]
     Indication: Immunodeficiency
  4. SODIUM CHLORIDE [Concomitant]
     Active Substance: SODIUM CHLORIDE
     Dosage: 50 ML, TOTAL
     Route: 065
     Dates: start: 20241101, end: 20241101

REACTIONS (5)
  - Petechiae [Recovering/Resolving]
  - Rash maculo-papular [Recovering/Resolving]
  - Erythema [Recovering/Resolving]
  - Pruritus [Recovering/Resolving]
  - Drug eruption [Recovering/Resolving]

NARRATIVE: CASE EVENT DATE: 20241101
